FAERS Safety Report 14843706 (Version 2)
Quarter: 2018Q2

REPORT INFORMATION
  Report Type: Report from Study
  Country: US (occurrence: US)
  Receive Date: 20180503
  Receipt Date: 20180517
  Transmission Date: 20180711
  Serious: Yes (Other)
  Sender: FDA-Public Use
  Company Number: US-BAYER-2018-035930

PATIENT
  Age: 82 Year
  Sex: Male

DRUGS (4)
  1. XOFIGO [Suspect]
     Active Substance: RADIUM RA-223 DICHLORIDE
     Indication: HORMONE-REFRACTORY PROSTATE CANCER
     Dosage: UNK, ONCE
     Route: 042
  2. XOFIGO [Suspect]
     Active Substance: RADIUM RA-223 DICHLORIDE
     Indication: METASTASES TO BONE
     Dosage: UNK, ONCE
     Route: 042
     Dates: start: 20180117
  3. BAYER ASPIRIN [Suspect]
     Active Substance: ASPIRIN
  4. XOFIGO [Suspect]
     Active Substance: RADIUM RA-223 DICHLORIDE
     Indication: HORMONE-REFRACTORY PROSTATE CANCER
     Dosage: UNK, ONCE
     Route: 042
     Dates: start: 2017, end: 2017

REACTIONS (7)
  - Musculoskeletal pain [None]
  - Upper gastrointestinal haemorrhage [None]
  - Deep vein thrombosis [Recovering/Resolving]
  - Acute myocardial infarction [None]
  - Blood count abnormal [None]
  - Chest pain [None]
  - Pain in jaw [None]

NARRATIVE: CASE EVENT DATE: 2018
